FAERS Safety Report 22093350 (Version 1)
Quarter: 2023Q1

REPORT INFORMATION
  Report Type: Spontaneous
  Country: US (occurrence: None)
  Receive Date: 20230314
  Receipt Date: 20230314
  Transmission Date: 20230417
  Serious: No
  Sender: FDA-Public Use
  Company Number: None

PATIENT
  Age: 85 Year
  Sex: Female
  Weight: 54.88 kg

DRUGS (14)
  1. LENALIDOMIDE [Suspect]
     Active Substance: LENALIDOMIDE
     Indication: Plasma cell myeloma
     Dosage: OTHER FREQUENCY : 3W,1WOFF;?
     Route: 048
  2. CARAFATE [Concomitant]
  3. CELEXA [Concomitant]
  4. DECADRON [Concomitant]
  5. DILTIAZEM [Concomitant]
  6. ELIQUIS [Concomitant]
  7. LASIX [Concomitant]
  8. LYRICA MEDROL [Concomitant]
  9. PANTOPRAZOLE [Concomitant]
  10. PERCOCET [Concomitant]
  11. PRAVASTATIN [Concomitant]
  12. PROLIA [Concomitant]
  13. GLUCOSAMINE-CHONDROITIN [Concomitant]
  14. REMERON [Concomitant]

REACTIONS (1)
  - Hospice care [None]
